FAERS Safety Report 6017693-8 (Version None)
Quarter: 2008Q4

REPORT INFORMATION
  Report Type: 
  Country: None (occurrence: None)
  Receive Date: 20081223
  Receipt Date: 20081215
  Transmission Date: 20090506
  Serious: Yes (Disabling)
  Sender: FDA-Public Use
  Company Number: CH-PURDUE-DEU_2008_0004901

PATIENT
  Age: 35 Year
  Sex: Female

DRUGS (3)
  1. MS CONTIN [Suspect]
     Indication: PROCEDURAL PAIN
     Dosage: 240 MG, DAILY
     Route: 048
     Dates: start: 20010101
  2. METHADON [Concomitant]
  3. LYRICA [Concomitant]

REACTIONS (1)
  - DENTAL CARIES [None]
